FAERS Safety Report 4586496-3 (Version None)
Quarter: 2005Q1

REPORT INFORMATION
  Report Type: 
  Country: None (occurrence: None)
  Receive Date: 20050217
  Receipt Date: 20050217
  Transmission Date: 20050727
  Serious: Yes (Other)
  Sender: FDA-Public Use
  Company Number: None

PATIENT
  Age: 67 Year
  Sex: Female
  Weight: 61.6892 kg

DRUGS (8)
  1. ALPRAZOLAM [Suspect]
     Indication: ANXIETY
     Dosage: 0.5 TID PO
     Route: 048
  2. ZETIA [Concomitant]
  3. ATENOLOL [Concomitant]
  4. ASPIRIN [Concomitant]
  5. SYNTHROID [Concomitant]
  6. PREVACID [Concomitant]
  7. UNIRETIC [Concomitant]
  8. NITROGLYCERIN [Concomitant]

REACTIONS (3)
  - MIDDLE INSOMNIA [None]
  - PALPITATIONS [None]
  - PHARMACEUTICAL PRODUCT COMPLAINT [None]
